FAERS Safety Report 8529944-6 (Version None)
Quarter: 2012Q3

REPORT INFORMATION
  Report Type: 
  Country: None (occurrence: None)
  Receive Date: 20120723
  Receipt Date: 20120712
  Transmission Date: 20120928
  Serious: Yes (Life-Threatening, Hospitalization, Other)
  Sender: FDA-Public Use
  Company Number: DE-BRISTOL-MYERS SQUIBB COMPANY-16697955

PATIENT

DRUGS (1)
  1. CHOLESTYRAMINE [Suspect]

REACTIONS (2)
  - DYSPHAGIA [None]
  - ADVERSE EVENT [None]
